FAERS Safety Report 11185156 (Version 1)
Quarter: 2015Q2

REPORT INFORMATION
  Report Type: Spontaneous
  Country: US (occurrence: None)
  Receive Date: 20150611
  Receipt Date: 20150611
  Transmission Date: 20150821
  Serious: Yes (Other)
  Sender: FDA-Public Use
  Company Number: None

PATIENT
  Age: 8 Year
  Sex: Female
  Weight: 26.31 kg

DRUGS (6)
  1. FLONASE [Concomitant]
     Active Substance: FLUTICASONE PROPIONATE
  2. MONTELUKAST SODIUM CHEWABLE [Suspect]
     Active Substance: MONTELUKAST SODIUM
     Indication: HYPERSENSITIVITY
     Dosage: 1 PILL
     Route: 048
     Dates: start: 20150521, end: 20150609
  3. MONTELUKAST SODIUM CHEWABLE [Suspect]
     Active Substance: MONTELUKAST SODIUM
     Indication: ASTHMA
     Dosage: 1 PILL
     Route: 048
     Dates: start: 20150521, end: 20150609
  4. ZYRTEC [Concomitant]
     Active Substance: CETIRIZINE HYDROCHLORIDE
  5. ADVAIR DISCUS [Concomitant]
  6. SINGULAIR [Concomitant]
     Active Substance: MONTELUKAST SODIUM

REACTIONS (4)
  - Aggression [None]
  - Oppositional defiant disorder [None]
  - Anger [None]
  - Mood altered [None]

NARRATIVE: CASE EVENT DATE: 20150602
